FAERS Safety Report 5598498-9 (Version None)
Quarter: 2008Q1

REPORT INFORMATION
  Report Type: 
  Country: None (occurrence: None)
  Receive Date: 20080116
  Receipt Date: 20080106
  Transmission Date: 20080703
  Serious: Yes (Hospitalization)
  Sender: FDA-Public Use
  Company Number: 20084586

PATIENT
  Sex: Female

DRUGS (1)
  1. LIORESAL [Suspect]
     Indication: MUSCLE SPASTICITY
     Dosage: 551.4 MCG, DAILY, INTRATHECAL SEE E

REACTIONS (8)
  - DEHYDRATION [None]
  - DEVICE MALFUNCTION [None]
  - DISEASE RECURRENCE [None]
  - HYPOTONIA [None]
  - OVERDOSE [None]
  - PNEUMONIA ASPIRATION [None]
  - SEDATION [None]
  - URINARY TRACT INFECTION STAPHYLOCOCCAL [None]
